FAERS Safety Report 5743606-X (Version None)
Quarter: 2008Q2

REPORT INFORMATION
  Report Type: 
  Country: None (occurrence: None)
  Receive Date: 20080519
  Receipt Date: 20080519
  Transmission Date: 20081010
  Serious: Yes (Other)
  Sender: FDA-Public Use
  Company Number: None

PATIENT
  Age: 11 Year
  Sex: Male
  Weight: 28.123 kg

DRUGS (4)
  1. ABILIFY [Suspect]
     Indication: AUTISM SPECTRUM DISORDER
     Dosage: 10 MG QAM PO
     Route: 048
     Dates: start: 20061015, end: 20080509
  2. STRATTERA [Suspect]
     Indication: ABNORMAL BEHAVIOUR
     Dosage: 40 MG QAM PO
     Route: 048
  3. STRATTERA [Suspect]
     Indication: AFFECT LABILITY
     Dosage: 40 MG QAM PO
     Route: 048
  4. WELLBUTRIN XL [Concomitant]

REACTIONS (3)
  - COGWHEEL RIGIDITY [None]
  - MOVEMENT DISORDER [None]
  - RESTLESSNESS [None]
